FAERS Safety Report 13751750 (Version 2)
Quarter: 2018Q3

REPORT INFORMATION
  Report Type: Spontaneous
  Country: US (occurrence: US)
  Receive Date: 20170713
  Receipt Date: 20180713
  Transmission Date: 20181010
  Serious: No
  Sender: FDA-Public Use
  Company Number: US-ASTELLAS-2017US024453

PATIENT
  Sex: Male

DRUGS (1)
  1. MYRBETRIQ [Suspect]
     Active Substance: MIRABEGRON
     Indication: MICTURITION URGENCY
     Dosage: 50 MG (ONE?HALF TABLET), ONCE DAILY
     Route: 065
     Dates: start: 20170619

REACTIONS (2)
  - Drug prescribing error [Unknown]
  - Intentional product use issue [Unknown]
